FAERS Safety Report 5399451-0 (Version None)
Quarter: 2007Q3

REPORT INFORMATION
  Report Type: 
  Country: None (occurrence: None)
  Receive Date: 20070727
  Receipt Date: 20070724
  Transmission Date: 20080115
  Serious: Yes (Other)
  Sender: FDA-Public Use
  Company Number: AU-PFIZER INC-2007061257

PATIENT
  Sex: Female

DRUGS (4)
  1. ZOLOFT [Suspect]
  2. LAMICTAL [Concomitant]
  3. KEPPRA [Concomitant]
  4. METHOTREXATE [Concomitant]

REACTIONS (4)
  - CONFUSIONAL STATE [None]
  - CONVULSION [None]
  - EPILEPSY [None]
  - FEELING ABNORMAL [None]
